FAERS Safety Report 9578400 (Version 1)
Quarter: 2013Q4

REPORT INFORMATION
  Report Type: Spontaneous
  Country: US (occurrence: US)
  Receive Date: 20131001
  Receipt Date: 20131001
  Transmission Date: 20140711
  Serious: No
  Sender: FDA-Public Use
  Company Number: US-AMGEN-USASP2013012546

PATIENT
  Age: 50 Year
  Sex: Female

DRUGS (3)
  1. ENBREL [Suspect]
     Indication: ANKYLOSING SPONDYLITIS
     Dosage: 50 MILLIGRAMS WEEKLY
     Dates: start: 20121001
  2. METHOTREXATE [Concomitant]
     Dosage: 8 - 2.5 MILLIGRAM TABS ONCE WEEKLY
     Dates: start: 201209
  3. PREDNISONE [Concomitant]
     Dosage: 5 MG, DAILY
     Dates: start: 2012

REACTIONS (6)
  - Back pain [Not Recovered/Not Resolved]
  - Mobility decreased [Not Recovered/Not Resolved]
  - Neck pain [Not Recovered/Not Resolved]
  - Musculoskeletal pain [Not Recovered/Not Resolved]
  - Pain in extremity [Not Recovered/Not Resolved]
  - Headache [Not Recovered/Not Resolved]
